FAERS Safety Report 8621777-5 (Version None)
Quarter: 2012Q3

REPORT INFORMATION
  Report Type: 
  Country: None (occurrence: None)
  Receive Date: 20120821
  Receipt Date: 20120821
  Transmission Date: 20120928
  Serious: No
  Sender: FDA-Public Use
  Company Number: None

PATIENT
  Sex: Female

DRUGS (1)
  1. NEUPOGEN [Suspect]
     Indication: BREAST CANCER
     Dosage: 300MCG DAILYX2 DAYS/WEEK SQ
     Route: 058
     Dates: start: 20120611

REACTIONS (2)
  - PAIN IN EXTREMITY [None]
  - GAIT DISTURBANCE [None]
